FAERS Safety Report 9408936 (Version 1)
Quarter: 2013Q3

REPORT INFORMATION
  Report Type: Spontaneous
  Country: FR (occurrence: FR)
  Receive Date: 20130719
  Receipt Date: 20130719
  Transmission Date: 20140515
  Serious: Yes (Life-Threatening, Other)
  Sender: FDA-Public Use
  Company Number: FR-TEVA-419824ISR

PATIENT
  Age: 66 Year
  Sex: Female

DRUGS (9)
  1. OXALIPLATINE TEVA [Suspect]
     Indication: ADENOCARCINOMA OF COLON
     Dosage: 85 MG/M2 DAILY; 1 COURSE EVERY 15 DAYS
     Route: 041
     Dates: start: 20121130, end: 20121227
  2. OXALIPLATINE TEVA [Suspect]
     Dosage: 85 MG/M2 DAILY; 1 COURSE EVERY 15 DAYS (BOLUS VOLUME DECREASED AT 50 %)
     Route: 041
     Dates: start: 20130201, end: 20130301
  3. LEVOFOLINATE DE CALCIUM WINTHROP [Suspect]
     Indication: ADENOCARCINOMA OF COLON
     Dosage: 200 MG/M2 DAILY; 1 COURSE EVERY 15 DAYS
     Route: 041
     Dates: start: 20121130, end: 20121227
  4. LEVOFOLINATE DE CALCIUM WINTHROP [Suspect]
     Dosage: 200 MG/M2 DAILY; 1 COURSE EVERY 15 DAYS
     Route: 041
     Dates: start: 20130201, end: 20130301
  5. FLUOROURACILE PFIZER [Concomitant]
     Indication: ADENOCARCINOMA OF COLON
     Dosage: 1 COURSE EVERY 15 DAYS
     Route: 041
     Dates: start: 20121130, end: 20121227
  6. FLUOROURACILE PFIZER [Concomitant]
     Dosage: 1 COURSE EVERY 15 DAYS
     Route: 041
     Dates: start: 20130201
  7. ATENOLOL [Concomitant]
     Dosage: 25 MILLIGRAM DAILY; TABLET OF 50 MG (1/2 ON MORNING)
  8. METHYLPREDNISOLONE [Concomitant]
     Indication: CHEMOTHERAPY
     Dates: start: 20121130
  9. ONDANSETRON [Concomitant]
     Indication: CHEMOTHERAPY
     Route: 042
     Dates: start: 20121130

REACTIONS (6)
  - Hypotension [Recovered/Resolved]
  - Erythema [Recovered/Resolved]
  - Paraesthesia [Recovered/Resolved]
  - Back pain [Recovered/Resolved]
  - Malaise [Recovered/Resolved]
  - Feeling hot [Recovered/Resolved]
